FAERS Safety Report 6339116-1 (Version None)
Quarter: 2009Q3

REPORT INFORMATION
  Report Type: 
  Country: None (occurrence: None)
  Receive Date: 20090903
  Receipt Date: 20090831
  Transmission Date: 20100115
  Serious: Yes (Death, Life-Threatening, Hospitalization)
  Sender: FDA-Public Use
  Company Number: FR-BRISTOL-MYERS SQUIBB COMPANY-14622369

PATIENT
  Age: 81 Year
  Sex: Male

DRUGS (9)
  1. SINEMET [Suspect]
     Indication: PARKINSON'S DISEASE
     Dosage: 20/200MG
     Route: 048
  2. SOTALOL HCL [Suspect]
     Route: 048
  3. FLUINDIONE [Suspect]
     Indication: ARRHYTHMIA
     Dosage: FORMULATION - TABS
     Route: 048
     Dates: end: 20090316
  4. STABLON [Suspect]
     Route: 048
  5. STALEVO 100 [Suspect]
     Indication: PARKINSON'S DISEASE
     Dosage: FORMULATION TABS 1 DF = 1DF=100 MG/25MG/200MG
     Route: 048
  6. LERCANIDIPINE [Suspect]
     Indication: HYPERTENSION
     Dosage: FORMULATION TABS
     Route: 048
  7. LASILIX FAIBLE [Suspect]
     Route: 048
  8. KASKADIL [Suspect]
     Route: 042
     Dates: start: 20090316
  9. VITAMIN K1 [Suspect]
     Route: 042
     Dates: start: 20090316

REACTIONS (2)
  - CEREBELLAR HAEMATOMA [None]
  - ISCHAEMIC STROKE [None]
